FAERS Safety Report 16939646 (Version 2)
Quarter: 2019Q4

REPORT INFORMATION
  Report Type: Spontaneous
  Country: US (occurrence: US)
  Receive Date: 20191021
  Receipt Date: 20191021
  Transmission Date: 20200122
  Serious: Yes (Other)
  Sender: FDA-Public Use
  Company Number: US-SHIRE-US201934398

PATIENT
  Sex: Female

DRUGS (4)
  1. NATPARA (PARATHYROID HORMONE) [Suspect]
     Active Substance: PARATHYROID HORMONE
     Indication: HYPOPARATHYROIDISM
     Dosage: 50 MICROGRAM
     Route: 065
  2. CALCIUM [Concomitant]
     Active Substance: CALCIUM
     Indication: HYPOPARATHYROIDISM
     Route: 065
  3. CALCITRIOL. [Concomitant]
     Active Substance: CALCITRIOL
     Indication: HYPOPARATHYROIDISM
     Route: 065
  4. CALCIUM CARBONATE. [Concomitant]
     Active Substance: CALCIUM CARBONATE
     Indication: HYPOPARATHYROIDISM
     Route: 065

REACTIONS (4)
  - Hypocalcaemia [Unknown]
  - Nephrolithiasis [Unknown]
  - Recalled product [Unknown]
  - Hypercalciuria [Unknown]
